FAERS Safety Report 5873525-X (Version None)
Quarter: 2008Q3

REPORT INFORMATION
  Report Type: 
  Country: None (occurrence: None)
  Receive Date: 20080829
  Receipt Date: 20070625
  Transmission Date: 20090109
  Serious: Yes (Hospitalization)
  Sender: FDA-Public Use
  Company Number: 2007-00591FE

PATIENT
  Age: 16 Year
  Sex: Male

DRUGS (1)
  1. ZOMACTON (ZOMACTON) (SOMATROPIN) [Suspect]
     Indication: GROWTH HORMONE DEFICIENCY
     Dosage: 1.9 MG; SC
     Route: 058
     Dates: start: 20030226, end: 20070625

REACTIONS (1)
  - ERYSIPELAS [None]
